FAERS Safety Report 4471703-8 (Version None)
Quarter: 2004Q4

REPORT INFORMATION
  Report Type: 
  Country: None (occurrence: None)
  Receive Date: 20041007
  Receipt Date: 20041001
  Transmission Date: 20050328
  Serious: Yes (Hospitalization)
  Sender: FDA-Public Use
  Company Number: 200410509BNE

PATIENT
  Age: 21 Year
  Sex: Female
  Weight: 56 kg

DRUGS (1)
  1. MOXIFLOXACIN [Suspect]
     Indication: PELVIC INFLAMMATORY DISEASE
     Dosage: ORAL
     Route: 048
     Dates: start: 20040722, end: 20040725

REACTIONS (2)
  - ABDOMINAL PAIN LOWER [None]
  - METRORRHAGIA [None]
